FAERS Safety Report 7130829-0 (Version None)
Quarter: 2010Q4

REPORT INFORMATION
  Report Type: 
  Country: None (occurrence: None)
  Receive Date: 20101201
  Receipt Date: 20070711
  Transmission Date: 20110411
  Serious: Yes (Other)
  Sender: FDA-Public Use
  Company Number: AU-ROCHE-743571

PATIENT

DRUGS (1)
  1. CELLCEPT [Suspect]
     Route: 065

REACTIONS (4)
  - RENAL TRANSPLANT [None]
  - SURGICAL PROCEDURE REPEATED [None]
  - TRANSPLANT FAILURE [None]
  - TREATMENT NONCOMPLIANCE [None]
